FAERS Safety Report 4913621-4 (Version None)
Quarter: 2006Q1

REPORT INFORMATION
  Report Type: 
  Country: None (occurrence: None)
  Receive Date: 20060216
  Receipt Date: 20060207
  Transmission Date: 20060701
  Serious: Yes (Death)
  Sender: FDA-Public Use
  Company Number: US-JNJFOC-20040704013

PATIENT
  Sex: Female

DRUGS (25)
  1. DURAGESIC-100 [Suspect]
     Route: 062
  2. DURAGESIC-100 [Suspect]
     Indication: PAIN
     Route: 062
  3. SILVADENE [Concomitant]
     Route: 061
  4. VALIUM [Concomitant]
     Route: 048
  5. NEURONTIN [Concomitant]
     Route: 048
  6. DEPAKOTE [Concomitant]
     Route: 048
  7. SEROQUEL [Concomitant]
     Route: 048
  8. THIAMINE [Concomitant]
     Route: 048
  9. RISPERDAL [Concomitant]
     Indication: AGITATION
     Dosage: EVERY 4-6 HRS AS NEEDED.
     Route: 048
  10. MULTIVITAMIN [Concomitant]
     Route: 048
  11. MULTIVITAMIN [Concomitant]
     Route: 048
  12. MULTIVITAMIN [Concomitant]
     Route: 048
  13. MULTIVITAMIN [Concomitant]
     Route: 048
  14. MULTIVITAMIN [Concomitant]
     Route: 048
  15. MULTIVITAMIN [Concomitant]
     Route: 048
  16. MULTIVITAMIN [Concomitant]
     Route: 048
  17. MULTIVITAMIN [Concomitant]
     Route: 048
  18. VITAMIN E [Concomitant]
     Route: 048
  19. REMERON [Concomitant]
     Route: 048
  20. NICODERM [Concomitant]
     Route: 062
  21. PERCOCET [Concomitant]
     Route: 048
  22. PERCOCET [Concomitant]
     Indication: PAIN
     Dosage: 5 MG ONE TO TWO EVERY 4 HRS
     Route: 048
  23. LORTAB [Concomitant]
     Route: 048
  24. LORTAB [Concomitant]
     Indication: PAIN
     Dosage: ONE TO TWO TABS EVERY 4-6 HRS
     Route: 048
  25. MORPHINE [Concomitant]
     Indication: PAIN
     Dosage: 2-4 MG INTRAVENOUS EVERY 3 HRS AS NEEDED.
     Route: 042

REACTIONS (5)
  - CARDIO-RESPIRATORY ARREST [None]
  - COMA [None]
  - DEPRESSED LEVEL OF CONSCIOUSNESS [None]
  - INSOMNIA [None]
  - PAIN [None]
